FAERS Safety Report 8906682 (Version 3)
Quarter: 2012Q4

REPORT INFORMATION
  Report Type: 
  Country: JP (occurrence: JP)
  Receive Date: 20121114
  Receipt Date: 20121203
  Transmission Date: 20130627
  Serious: Yes (Life-Threatening, Hospitalization)
  Sender: FDA-Public Use
  Company Number: JP-BRISTOL-MYERS SQUIBB COMPANY-17119694

PATIENT
  Age: 64 Year
  Sex: Male

DRUGS (9)
  1. ABILIFY TABS [Suspect]
     Indication: BIPOLAR DISORDER
     Dosage: Last dose on 24Oct2012
     Route: 048
     Dates: start: 20121018, end: 20121024
  2. LIMAS [Suspect]
     Indication: BIPOLAR I DISORDER
     Dosage: Tablet
     Route: 048
     Dates: end: 20121024
  3. RISPERIDONE [Suspect]
     Indication: MANIA
     Dosage: 1DF=.5-2mg Tablet
     Route: 048
     Dates: start: 20121013, end: 20121024
  4. LITHIUM [Concomitant]
     Dosage: tablet
  5. LAMICTAL [Concomitant]
     Dosage: tablet
     Dates: start: 20120629, end: 20121025
  6. EURODIN [Concomitant]
     Dosage: Tablet
     Dates: end: 20121024
  7. PURSENNID [Concomitant]
     Dosage: Tablet
     Dates: end: 20121024
  8. DAONIL [Concomitant]
     Dosage: Tablet
     Dates: end: 20121025
  9. BASEN [Concomitant]
     Dosage: Tablet
     Dates: end: 20121025

REACTIONS (2)
  - Cardiogenic shock [Recovered/Resolved]
  - Delirium [Recovered/Resolved]
